FAERS Safety Report 8829693 (Version 1)
Quarter: 2012Q4

REPORT INFORMATION
  Report Type: 
  Country: US (occurrence: US)
  Receive Date: 20121008
  Receipt Date: 20121008
  Transmission Date: 20130627
  Serious: Yes (Death, Other)
  Sender: FDA-Public Use
  Company Number: US-ROCHE-1130227

PATIENT
  Sex: Female

DRUGS (4)
  1. RITUXAN [Suspect]
     Indication: PROLYMPHOCYTIC LEUKAEMIA
     Route: 065
     Dates: start: 20000613
  2. RITUXAN [Suspect]
     Indication: LYMPHOCYTIC LEUKAEMIA
     Route: 065
     Dates: start: 20000822
  3. RITUXAN [Suspect]
     Route: 065
     Dates: start: 20000828
  4. RITUXAN [Suspect]
     Route: 065
     Dates: start: 20000905

REACTIONS (2)
  - Death [Fatal]
  - Subdural haematoma [Unknown]
